FAERS Safety Report 5129300-7 (Version None)
Quarter: 2006Q4

REPORT INFORMATION
  Report Type: 
  Country: None (occurrence: None)
  Receive Date: 20061011
  Receipt Date: 20060929
  Transmission Date: 20070319
  Serious: Yes (Hospitalization)
  Sender: FDA-Public Use
  Company Number: 224173

PATIENT
  Age: 46 Year
  Sex: Female

DRUGS (13)
  1. XOLAIR [Suspect]
     Indication: ASTHMA
     Dosage: Q2W, SUBCUTANEOUS
     Route: 058
     Dates: start: 20051209, end: 20060401
  2. CIPROFLOXACIN [Suspect]
     Indication: DRUG USE FOR UNKNOWN INDICATION
  3. VENLAFAXINE HCL [Suspect]
     Indication: DRUG USE FOR UNKNOWN INDICATION
  4. ANTIBIOTIC (ANTIBIOTICS NOS) [Concomitant]
  5. FLUTICASONE PROPIONATE [Concomitant]
  6. MONTELUKAST (MONTELUKAST SODIUM) [Concomitant]
  7. PHYLLOCONTIN (AMINOPHYLLINE) [Concomitant]
  8. PREDNISOLONE [Concomitant]
  9. MUCODYNE (CARBOCYSTEINE) [Concomitant]
  10. LANSOPRAZOLE [Concomitant]
  11. SALBUTAMOL (ALBUTEROL/ALBUTEROL SULFATE) [Concomitant]
  12. ATROVENT [Concomitant]
  13. COLOMYCIN (COLISTIN SULFATE) [Concomitant]

REACTIONS (1)
  - EPILEPSY [None]
